FAERS Safety Report 8256370-X (Version None)
Quarter: 2012Q1

REPORT INFORMATION
  Report Type: 
  Country: None (occurrence: None)
  Receive Date: 20120330
  Receipt Date: 20120320
  Transmission Date: 20120608
  Serious: Yes (Hospitalization, Other)
  Sender: FDA-Public Use
  Company Number: AUR-APL-2012-01570

PATIENT
  Age: 74 Year
  Sex: Female

DRUGS (3)
  1. VANCOMYCIN [Concomitant]
  2. AMPICILLIN AND SULBACTAM [Suspect]
     Indication: PNEUMONIA
  3. CEFTRIAXONE [Concomitant]

REACTIONS (1)
  - LINEAR IGA DISEASE [None]
